FAERS Safety Report 6047250-9 (Version None)
Quarter: 2009Q1

REPORT INFORMATION
  Report Type: 
  Country: None (occurrence: None)
  Receive Date: 20090122
  Receipt Date: 20090109
  Transmission Date: 20090719
  Serious: Yes (Hospitalization, Other)
  Sender: FDA-Public Use
  Company Number: FR-ELI_LILLY_AND_COMPANY-FR200812003635

PATIENT
  Sex: Female
  Weight: 44 kg

DRUGS (4)
  1. CYMBALTA [Suspect]
     Indication: DIABETIC NEUROPATHY
     Dosage: 60 MG, DAILY (1/D)
     Route: 048
     Dates: start: 20081001, end: 20081001
  2. HUMALOG [Concomitant]
     Indication: TYPE 1 DIABETES MELLITUS
     Dosage: 38 IU, DAILY (1/D)
     Route: 058
  3. ACETAMINOPHEN AND CODEINE PHOSPHATE [Concomitant]
     Indication: DIABETIC NEUROPATHY
     Dosage: UNK, AS NEEDED
     Route: 048
  4. LEVEMIR [Concomitant]
     Indication: TYPE 1 DIABETES MELLITUS
     Dosage: 18 IU, DAILY (1/D)
     Route: 058

REACTIONS (6)
  - CONDITION AGGRAVATED [None]
  - HYPERAESTHESIA [None]
  - HYPOVITAMINOSIS [None]
  - INSOMNIA [None]
  - NEURALGIA [None]
  - PARAESTHESIA [None]
